FAERS Safety Report 6032035-X (Version None)
Quarter: 2009Q1

REPORT INFORMATION
  Report Type: 
  Country: None (occurrence: None)
  Receive Date: 20090107
  Receipt Date: 20081222
  Transmission Date: 20090719
  Serious: Yes (Hospitalization)
  Sender: FDA-Public Use
  Company Number: DSA_32964_2008

PATIENT
  Sex: Female

DRUGS (9)
  1. DILTIAZEM HYDROCHLORIDE (BI-TILDIEM - [Suspect]
     Indication: HYPERTENSION
     Dosage: (90 MG BID ORAL)
     Route: 048
     Dates: start: 20030101, end: 20081128
  2. COAPROVEL (COAPROVEL)       162.5 MG (NOT SPECIFIED) [Suspect]
     Indication: HYPERTENSION
     Dosage: (162.5 MG QD ORAL)
     Route: 048
     Dates: start: 20081118, end: 20081128
  3. DIGOXINE NATIVELLE (DIGOXINE NATIVELLE) (NOT SPECIFIED) [Suspect]
     Indication: DRUG USE FOR UNKNOWN INDICATION
     Dosage: (0.5 UNIT QD ORAL)
     Route: 048
     Dates: start: 20030101, end: 20081127
  4. DIFFU K [Concomitant]
  5. PREVISCAN [Concomitant]
  6. DEROXAT [Concomitant]
  7. DIPIPERON [Concomitant]
  8. CALCIDOSE [Concomitant]
  9. LASIX [Concomitant]

REACTIONS (7)
  - BRADYCARDIA [None]
  - CREATININE RENAL CLEARANCE DECREASED [None]
  - HYPOTENSION [None]
  - LOSS OF CONSCIOUSNESS [None]
  - LOSS OF PROPRIOCEPTION [None]
  - MALAISE [None]
  - VENTRICULAR EXTRASYSTOLES [None]
